FAERS Safety Report 5281306-3 (Version None)
Quarter: 2007Q1

REPORT INFORMATION
  Report Type: 
  Country: None (occurrence: None)
  Receive Date: 20061221
  Receipt Date: 20040616
  Transmission Date: 20070707
  Serious: Yes (Hospitalization)
  Sender: FDA-Public Use
  Company Number: 2004UW12622

PATIENT
  Age: 42 Year
  Sex: Female
  Weight: 61.2356 kg

DRUGS (1)
  1. SENSORCAINE [Suspect]
     Dates: start: 20040611

REACTIONS (4)
  - CONVULSION [None]
  - DIZZINESS [None]
  - HEADACHE [None]
  - HYPOTENSION [None]
